FAERS Safety Report 7690477-0 (Version None)
Quarter: 2011Q3

REPORT INFORMATION
  Report Type: 
  Country: None (occurrence: None)
  Receive Date: 20110818
  Receipt Date: 20110811
  Transmission Date: 20111222
  Serious: Yes (Death, Other)
  Sender: FDA-Public Use
  Company Number: US-PFIZER INC-2011186938

PATIENT
  Sex: Male
  Weight: 40.816 kg

DRUGS (1)
  1. SUTENT [Suspect]
     Indication: RENAL CANCER
     Dosage: 12.5MG (4) DAILY

REACTIONS (3)
  - MYOCARDIAL INFARCTION [None]
  - WEIGHT DECREASED [None]
  - MALNUTRITION [None]
